FAERS Safety Report 7590814 (Version 1)
Quarter: 2020Q3

REPORT INFORMATION
  Report Type: Report from Study
  Country: DE (occurrence: DE)
  Receive Date: 20100917
  Receipt Date: 20100917
  Transmission Date: 20201104
  Serious: Yes (Hospitalization)
  Sender: FDA-Public Use
  Company Number: DE-ROCHE-565070

PATIENT
  Age: 71 Year
  Sex: Female
  Weight: 89 kg

DRUGS (5)
  1. IBANDRONIC ACID. [Suspect]
     Active Substance: IBANDRONIC ACID
     Route: 042
     Dates: start: 20080425
  2. RAMIPRIL. [Concomitant]
     Active Substance: RAMIPRIL
     Dosage: TAKEN IN MORNING AND AFTERNOON.
  3. CLEXANE [Concomitant]
     Active Substance: ENOXAPARIN SODIUM
     Dosage: DOSE: 40, FREQUENCY: 1?0?0
     Route: 058
     Dates: start: 20080514
  4. EUTHYROX [Concomitant]
     Active Substance: LEVOTHYROXINE SODIUM
     Dosage: DOSE: 100, FREQUENCY: 1?0?0
     Route: 048
     Dates: start: 20070808
  5. NOVALGIN (METAMIZOLE SODIUM) [Concomitant]
     Active Substance: METAMIZOLE SODIUM
     Dosage: DOSE: 30, FREQUENCY: 1?0?1
     Route: 048
     Dates: start: 20080514

REACTIONS (1)
  - Tachycardia [Recovered/Resolved]

NARRATIVE: CASE EVENT DATE: 20080514
